FAERS Safety Report 6771116-X (Version None)
Quarter: 2010Q2

REPORT INFORMATION
  Report Type: 
  Country: None (occurrence: None)
  Receive Date: 20100614
  Receipt Date: 20100614
  Transmission Date: 20101027
  Serious: Yes (Other)
  Sender: FDA-Public Use
  Company Number: None

PATIENT
  Age: 40 Year
  Sex: Female
  Weight: 69 kg

DRUGS (1)
  1. MARCAINE [Suspect]
     Indication: LABOUR COMPLICATION
     Dates: start: 20100530

REACTIONS (2)
  - ANAESTHETIC COMPLICATION [None]
  - PARALYSIS [None]
